FAERS Safety Report 7037859-8 (Version None)
Quarter: 2010Q4

REPORT INFORMATION
  Report Type: 
  Country: None (occurrence: None)
  Receive Date: 20101011
  Receipt Date: 20101004
  Transmission Date: 20110411
  Serious: Yes (Hospitalization)
  Sender: FDA-Public Use
  Company Number: CHPA2010US15700

PATIENT
  Age: 64 Year
  Sex: Female
  Weight: 41.27 kg

DRUGS (4)
  1. VOLTAREN [Suspect]
     Indication: NEUROPATHY PERIPHERAL
     Dosage: LITTLE AMOUNT, 3 TIMES A DAY ON AND OFF
     Route: 061
     Dates: start: 20090101, end: 20090101
  2. VOLTAREN [Suspect]
     Indication: OSTEOPOROSIS
  3. VOLTAREN [Suspect]
     Indication: ARTHRITIS
  4. ALLEGRA [Concomitant]
     Indication: MULTIPLE ALLERGIES
     Dosage: UNK

REACTIONS (5)
  - DRUG ADMINISTERED AT INAPPROPRIATE SITE [None]
  - GASTRIC ULCER PERFORATION [None]
  - OFF LABEL USE [None]
  - THERAPEUTIC RESPONSE UNEXPECTED [None]
  - WRONG TECHNIQUE IN DRUG USAGE PROCESS [None]
